FAERS Safety Report 5322342-8 (Version None)
Quarter: 2007Q2

REPORT INFORMATION
  Report Type: 
  Country: None (occurrence: None)
  Receive Date: 20070220
  Receipt Date: 20060815
  Transmission Date: 20071010
  Serious: No
  Sender: FDA-Public Use
  Company Number: TPA2006A01365

PATIENT
  Age: 58 Year
  Sex: Male
  Weight: 86.1834 kg

DRUGS (7)
  1. ROZEREM [Suspect]
     Indication: INSOMNIA
     Dosage: 8 MG, PER ORAL
     Route: 048
     Dates: start: 20060404, end: 20060406
  2. UNKNOWN HYPERTENSIVE MEDICATIONS(ALL OTHER THERAPEUTIC PRODUCTS) [Concomitant]
  3. UNKNOWN MEDICATIONS(ALL OTHER THERAPEUTIC PRODUCTS) [Concomitant]
  4. DIOVAN [Concomitant]
  5. NIASPAN [Concomitant]
  6. VYTORIN [Concomitant]
  7. EC ASPIRIN (ACETYSALICYLIC ACID) [Concomitant]

REACTIONS (1)
  - SOMNOLENCE [None]
